FAERS Safety Report 22120685 (Version 1)
Quarter: 2023Q1

REPORT INFORMATION
  Report Type: Spontaneous
  Country: US (occurrence: US)
  Receive Date: 20230321
  Receipt Date: 20230321
  Transmission Date: 20230418
  Serious: Yes (Other)
  Sender: FDA-Public Use
  Company Number: US-002147023-NVSC2023US060644

PATIENT
  Sex: Female
  Weight: 76.644 kg

DRUGS (2)
  1. LEQVIO [Suspect]
     Active Substance: INCLISIRAN SODIUM
     Indication: Hypercholesterolaemia
     Dosage: 284 MG, OTHER (1ST, 3 MONTH THEN EVERY 6 MONTHS)
     Route: 058
     Dates: start: 20221201
  2. LEQVIO [Suspect]
     Active Substance: INCLISIRAN SODIUM
     Indication: Hyperlipidaemia

REACTIONS (2)
  - Deafness [Unknown]
  - Herpes zoster [Unknown]
